FAERS Safety Report 5320003-2 (Version None)
Quarter: 2007Q2

REPORT INFORMATION
  Report Type: 
  Country: None (occurrence: None)
  Receive Date: 20070503
  Receipt Date: 20070424
  Transmission Date: 20071010
  Serious: Yes (Other)
  Sender: FDA-Public Use
  Company Number: US019979

PATIENT
  Age: 72 Year
  Sex: Female
  Weight: 72 kg

DRUGS (15)
  1. PROVIGIL [Suspect]
     Dosage: 100 MG PRN ORAL
     Route: 048
     Dates: start: 20040101
  2. PROVIGIL [Suspect]
     Dosage: 100 MG QD ORAL
     Route: 048
     Dates: start: 20070423
  3. CYMBALTA [Concomitant]
  4. VASOTEC [Concomitant]
  5. NITROGLYCERIN [Concomitant]
  6. DIGOXIN [Concomitant]
  7. ZOCOR [Concomitant]
  8. EPOGEN [Concomitant]
  9. AMBIEN [Concomitant]
  10. LOPRESSOR [Concomitant]
  11. CAPTOPRIL [Concomitant]
  12. ALDACTONE [Concomitant]
  13. TYLENOL [Concomitant]
  14. KEPPRA [Concomitant]
  15. LAMICTAL [Concomitant]

REACTIONS (5)
  - CONVULSION [None]
  - HEADACHE [None]
  - LOSS OF CONSCIOUSNESS [None]
  - PETIT MAL EPILEPSY [None]
  - SYNCOPE [None]
